FAERS Safety Report 12857413 (Version 4)
Quarter: 2016Q4

REPORT INFORMATION
  Report Type: Spontaneous
  Country: BR (occurrence: BR)
  Receive Date: 20161018
  Receipt Date: 20161221
  Transmission Date: 20170207
  Serious: Yes (Death, Hospitalization, Other)
  Sender: FDA-Public Use
  Company Number: BR-PFIZER INC-2016481936

PATIENT
  Age: 89 Year
  Sex: Female

DRUGS (3)
  1. NEULEPTIL /00038401/ [Concomitant]
     Active Substance: PERICIAZINE
     Dosage: UNK
     Dates: start: 2014, end: 201410
  2. FRONTAL [Suspect]
     Active Substance: ALPRAZOLAM
     Indication: SLEEP DISORDER THERAPY
     Dosage: 0.5 MG, 1 TABLET PER DAY
     Route: 048
     Dates: start: 1997, end: 2014
  3. FRONTAL [Suspect]
     Active Substance: ALPRAZOLAM
     Dosage: 1 MG
     Dates: start: 2014, end: 201410

REACTIONS (8)
  - Thrombosis [Recovered/Resolved]
  - Dementia [Not Recovered/Not Resolved]
  - Productive cough [Not Recovered/Not Resolved]
  - Agitation [Not Recovered/Not Resolved]
  - Dyspnoea [Not Recovered/Not Resolved]
  - Aggression [Not Recovered/Not Resolved]
  - Pulmonary oedema [Fatal]
  - Mood altered [Not Recovered/Not Resolved]

NARRATIVE: CASE EVENT DATE: 2014
